FAERS Safety Report 11028017 (Version 5)
Quarter: 2015Q3

REPORT INFORMATION
  Report Type: Spontaneous
  Country: US (occurrence: US)
  Receive Date: 20150414
  Receipt Date: 20150713
  Transmission Date: 20151125
  Serious: Yes (Hospitalization, Other)
  Sender: FDA-Public Use
  Company Number: US-GLAXOSMITHKLINE-US2015GSK041800

PATIENT
  Age: 55 Year
  Sex: Female

DRUGS (5)
  1. FLOLAN [Suspect]
     Active Substance: EPOPROSTENOL SODIUM
     Indication: PULMONARY ARTERIAL HYPERTENSION
     Dosage: 10NG/KG/MIN, 1.5 VIAL STREN, 15,000NG/ML CONCN, 59 ML/DAY PUMP
     Route: 042
     Dates: start: 20150320
  2. TRACLEER [Concomitant]
     Active Substance: BOSENTAN
  3. FLOLAN [Suspect]
     Active Substance: EPOPROSTENOL SODIUM
     Dosage: 12 NG/KG/MIN, CONCENTRATION 30,000 NG/ML, PUMP RATE 50 ML/DAY
  4. REVATIO [Concomitant]
     Active Substance: SILDENAFIL CITRATE
  5. FLOLAN [Suspect]
     Active Substance: EPOPROSTENOL SODIUM
     Dosage: 12 NG/KG/MIN (CONCENTRATION 15,000 NG/ML, PUMP RATE 70 MG/DAY, VIAL STRENGTH 1.5 MG), CO
     Route: 042

REACTIONS (6)
  - Cough [Unknown]
  - Diarrhoea [Unknown]
  - Hospitalisation [Unknown]
  - Pain [Unknown]
  - Joint swelling [Unknown]
  - Pain in jaw [Unknown]

NARRATIVE: CASE EVENT DATE: 20150425
